FAERS Safety Report 8174153-6 (Version None)
Quarter: 2012Q1

REPORT INFORMATION
  Report Type: 
  Country: None (occurrence: None)
  Receive Date: 20120229
  Receipt Date: 20120217
  Transmission Date: 20120608
  Serious: No
  Sender: FDA-Public Use
  Company Number: US-B.I. PHARMACEUTICALS,INC./RIDGEFIELD-2012-BP-03131BP

PATIENT
  Sex: Female

DRUGS (3)
  1. HYDROCHLOROTHIAZIDE [Concomitant]
     Route: 048
  2. PRADAXA [Suspect]
     Indication: ATRIAL FIBRILLATION
     Dosage: 300 MG
     Route: 055
     Dates: start: 20110701, end: 20120217
  3. ATENOLOL [Concomitant]
     Route: 048

REACTIONS (2)
  - CONTUSION [None]
  - INJURY [None]
